FAERS Safety Report 8935575 (Version 2)
Quarter: 2013Q1

REPORT INFORMATION
  Report Type: Spontaneous
  Country: BR (occurrence: BR)
  Receive Date: 20121130
  Receipt Date: 20130328
  Transmission Date: 20140127
  Serious: Yes (Death, Hospitalization)
  Sender: FDA-Public Use
  Company Number: PHHY2012BR109467

PATIENT
  Age: 91 Year
  Sex: Male

DRUGS (1)
  1. EXELON PATCH [Suspect]
     Indication: CONVULSION
     Dosage: 9.5 MG, DAILY
     Route: 062

REACTIONS (3)
  - Diverticulitis [Fatal]
  - Infection [Fatal]
  - Diarrhoea [Recovered/Resolved]
